FAERS Safety Report 6841122-5 (Version None)
Quarter: 2010Q3

REPORT INFORMATION
  Report Type: 
  Country: None (occurrence: None)
  Receive Date: 20100714
  Receipt Date: 20070628
  Transmission Date: 20110219
  Serious: No
  Sender: FDA-Public Use
  Company Number: US-PFIZER INC-2007054225

PATIENT
  Sex: Female
  Weight: 79.09 kg

DRUGS (8)
  1. CHANTIX [Suspect]
     Indication: SMOKING CESSATION THERAPY
     Dates: start: 20070610
  2. DIOVAN HCT [Concomitant]
  3. LOVASTATIN [Concomitant]
  4. ACTOS [Concomitant]
  5. ACETYLSALICYLIC ACID [Concomitant]
     Dosage: 3 EVERY 1 WEEKS
  6. CENTRUM SILVER [Concomitant]
  7. CALCIUM/MINERALS/VITAMIN D [Concomitant]
  8. FISH OIL [Concomitant]

REACTIONS (1)
  - NAUSEA [None]
